FAERS Safety Report 22259817 (Version 2)
Quarter: 2023Q2

REPORT INFORMATION
  Report Type: Spontaneous
  Country: RU (occurrence: RU)
  Receive Date: 20230427
  Receipt Date: 20230504
  Transmission Date: 20230722
  Serious: Yes (Hospitalization)
  Sender: FDA-Public Use
  Company Number: RU-009507513-2303RUS008857

PATIENT
  Sex: Female

DRUGS (1)
  1. RALTEGRAVIR POTASSIUM [Suspect]
     Active Substance: RALTEGRAVIR POTASSIUM
     Indication: HIV infection
     Route: 048

REACTIONS (5)
  - Treatment noncompliance [Unknown]
  - Immunology test abnormal [Recovered/Resolved]
  - Viral load increased [Recovered/Resolved]
  - Product administration error [Unknown]
  - Parent-child problem [Unknown]
